FAERS Safety Report 20226615 (Version 1)
Quarter: 2021Q4

REPORT INFORMATION
  Report Type: Report from Study
  Country: IN (occurrence: IN)
  Receive Date: 20211224
  Receipt Date: 20211224
  Transmission Date: 20220303
  Serious: Yes (Death, Other)
  Sender: FDA-Public Use
  Company Number: IN-NOVARTISPH-NVSC2021IN101337

PATIENT
  Age: 53 Year
  Sex: Male

DRUGS (5)
  1. NEORAL [Suspect]
     Active Substance: CYCLOSPORINE
     Indication: Renal transplant
     Dosage: 200 MG, BID
     Route: 065
     Dates: start: 20210223, end: 20210421
  2. TACROLIMUS [Suspect]
     Active Substance: TACROLIMUS
     Indication: Renal transplant
     Dosage: 3 MG, BID
     Route: 065
     Dates: start: 20210226
  3. TACROLIMUS [Suspect]
     Active Substance: TACROLIMUS
     Dosage: 3.5 MG, BID
     Route: 065
     Dates: start: 20210422
  4. MYFORTIC [Suspect]
     Active Substance: MYCOPHENOLATE SODIUM
     Indication: Renal transplant
     Dosage: 360 MG, BID
     Route: 065
     Dates: start: 20210223
  5. MYFORTIC [Suspect]
     Active Substance: MYCOPHENOLATE SODIUM
     Dosage: 360 MG, BID
     Route: 065
     Dates: start: 20210226

REACTIONS (3)
  - Death [Fatal]
  - Renal impairment [Recovering/Resolving]
  - Generalised oedema [Unknown]

NARRATIVE: CASE EVENT DATE: 20210327
